FAERS Safety Report 4541850-0 (Version None)
Quarter: 2004Q4

REPORT INFORMATION
  Report Type: 
  Country: None (occurrence: None)
  Receive Date: 20041230
  Receipt Date: 20041223
  Transmission Date: 20050328
  Serious: Yes (Hospitalization)
  Sender: FDA-Public Use
  Company Number: PHRM2004FR03781

PATIENT
  Age: 87 Year
  Sex: Male

DRUGS (3)
  1. TRILEPTAL [Suspect]
     Dosage: 60 MG/ML/DAY
     Route: 048
     Dates: end: 20041004
  2. ARICEPT [Suspect]
     Route: 048
  3. PROSCAR [Concomitant]
     Route: 048
     Dates: end: 20040826

REACTIONS (1)
  - PEMPHIGOID [None]
